FAERS Safety Report 25107211 (Version 1)
Quarter: 2025Q1

REPORT INFORMATION
  Report Type: Spontaneous
  Country: CZ (occurrence: CZ)
  Receive Date: 20250321
  Receipt Date: 20250321
  Transmission Date: 20250409
  Serious: Yes (Death, Life-Threatening, Hospitalization, Disabling, Other)
  Sender: BRISTOL-MYERS SQUIBB COMPANY
  Company Number: None

PATIENT
  Age: 82 Year
  Sex: Female
  Weight: 64 kg

DRUGS (6)
  1. OPDUALAG [Suspect]
     Active Substance: NIVOLUMAB\RELATLIMAB-RMBW
     Indication: Malignant melanoma
     Route: 042
     Dates: start: 20250210, end: 20250210
  2. TONANDA [Concomitant]
     Indication: Product used for unknown indication
     Dosage: 4MG/5MG/1,25 MG?1 - 0 - 0
     Route: 048
  3. ROSUVASTATIN [Concomitant]
     Active Substance: ROSUVASTATIN
     Indication: Product used for unknown indication
     Dosage: 0 - 0 - 1
     Route: 048
  4. GINKGO [Concomitant]
     Active Substance: GINKGO
     Indication: Product used for unknown indication
     Dosage: 1 - 0 - 0
     Route: 048
  5. BIOFENAC [ACECLOFENAC] [Concomitant]
     Indication: Pain
     Dosage: 1 - 0 - 1
     Route: 048
  6. ZOLPIDEM [Concomitant]
     Active Substance: ZOLPIDEM TARTRATE
     Indication: Product used for unknown indication
     Dosage: 0 - 0 - 0 - 1/2
     Route: 048

REACTIONS (6)
  - Lacrimation increased [Unknown]
  - Atrioventricular block second degree [Fatal]
  - Autoimmune myositis [Fatal]
  - Cortisol decreased [Unknown]
  - Vision blurred [Unknown]
  - Diplopia [Unknown]

NARRATIVE: CASE EVENT DATE: 20250201
